FAERS Safety Report 6000447-6 (Version None)
Quarter: 2008Q4

REPORT INFORMATION
  Report Type: 
  Country: None (occurrence: None)
  Receive Date: 20081212
  Receipt Date: 20080218
  Transmission Date: 20090506
  Serious: Yes (Other)
  Sender: FDA-Public Use
  Company Number: 18386

PATIENT
  Sex: Female

DRUGS (2)
  1. CARBOPLATIN [Suspect]
     Indication: NEOPLASM MALIGNANT
     Dosage: 260 MG WEEKLY IV
     Route: 042
     Dates: start: 20080121
  2. TAXOL [Suspect]
     Indication: NEOPLASM MALIGNANT

REACTIONS (2)
  - HYPERSENSITIVITY [None]
  - NAUSEA [None]
